FAERS Safety Report 9665209 (Version 3)
Quarter: 2013Q4

REPORT INFORMATION
  Report Type: Spontaneous
  Country: JP (occurrence: JP)
  Receive Date: 20131101
  Receipt Date: 20131220
  Transmission Date: 20140711
  Serious: Yes (Hospitalization, Other)
  Sender: FDA-Public Use
  Company Number: JP-ABBVIE-13P-087-1164796-00

PATIENT
  Age: 37 Year
  Sex: Female
  Weight: 68 kg

DRUGS (2)
  1. LEUPLIN [Suspect]
     Indication: UTERINE LEIOMYOMA
     Route: 058
     Dates: start: 201204, end: 201209
  2. LEUPLIN [Suspect]
     Indication: ADENOMYOSIS

REACTIONS (1)
  - Cerebral infarction [Unknown]
